FAERS Safety Report 8403909-7 (Version None)
Quarter: 2012Q2

REPORT INFORMATION
  Report Type: 
  Country: None (occurrence: None)
  Receive Date: 20120601
  Receipt Date: 20110913
  Transmission Date: 20120825
  Serious: No
  Sender: FDA-Public Use
  Company Number: US-NOVEN-11US003197

PATIENT
  Age: 6 Year
  Sex: Male

DRUGS (2)
  1. DAYTRANA [Suspect]
     Indication: ATTENTION DEFICIT/HYPERACTIVITY DISORDER
     Dosage: 10 MG, UNK
     Route: 062
     Dates: start: 20110903, end: 20110907
  2. DAYTRANA [Suspect]
     Dosage: 20 MG, UNK
     Route: 063
     Dates: start: 20110908

REACTIONS (1)
  - ORAL HERPES [None]
